FAERS Safety Report 7307493-0 (Version None)
Quarter: 2011Q1

REPORT INFORMATION
  Report Type: 
  Country: None (occurrence: None)
  Receive Date: 20110223
  Receipt Date: 20110209
  Transmission Date: 20110831
  Serious: Yes (Other)
  Sender: FDA-Public Use
  Company Number: US-RANBAXY-2011RR-41891

PATIENT
  Sex: Male

DRUGS (19)
  1. LEVAQUIN [Suspect]
     Dosage: UNK
     Route: 048
     Dates: start: 20010517, end: 20010527
  2. LEVAQUIN [Suspect]
     Dosage: UNK
     Route: 048
     Dates: start: 20020219, end: 20020301
  3. LEVAQUIN [Suspect]
     Dosage: UNK
     Route: 048
     Dates: start: 20020529, end: 20020608
  4. LEVAQUIN [Suspect]
     Dosage: UNK
     Route: 048
     Dates: start: 20021218, end: 20021228
  5. LEVAQUIN [Suspect]
     Dosage: UNK
     Route: 048
     Dates: start: 20031024, end: 20031101
  6. LEVAQUIN [Suspect]
     Dosage: UNK
     Route: 048
     Dates: start: 20011226, end: 20020104
  7. LEVAQUIN [Suspect]
     Dosage: UNK
     Route: 048
     Dates: start: 20080413, end: 20080423
  8. CIPROFLOXACIN [Suspect]
     Indication: URINARY TRACT INFECTION
  9. LEVAQUIN [Suspect]
     Dosage: UNK
     Route: 048
     Dates: start: 20040415, end: 20040416
  10. LEVAQUIN [Suspect]
     Dosage: UNK
     Route: 048
     Dates: start: 20060612, end: 20060622
  11. LEVAQUIN [Suspect]
     Dosage: UNK
     Route: 048
     Dates: start: 20010322
  12. LEVAQUIN [Suspect]
     Dosage: UNK
     Route: 048
     Dates: start: 20040316, end: 20040319
  13. LEVAQUIN [Suspect]
     Indication: BRONCHITIS
     Dosage: UNK
     Route: 048
     Dates: start: 20001218, end: 20001228
  14. CIPROFLOXACIN [Suspect]
     Indication: SINUSITIS
     Dosage: UNK
     Route: 048
     Dates: start: 20011119, end: 20071231
  15. LEVAQUIN [Suspect]
     Dosage: UNK
     Route: 048
     Dates: start: 20020816
  16. LEVAQUIN [Suspect]
     Indication: SINUSITIS
     Dosage: UNK
     Route: 048
     Dates: start: 20000824, end: 20000903
  17. LEVAQUIN [Suspect]
     Dosage: UNK
     Route: 048
     Dates: start: 20040413, end: 20040416
  18. LEVAQUIN [Suspect]
     Dosage: UNK
     Route: 048
     Dates: start: 20040510, end: 20040515
  19. LEVAQUIN [Suspect]
     Dosage: UNK
     Route: 048
     Dates: start: 20081020, end: 20081030

REACTIONS (4)
  - TENDON RUPTURE [None]
  - PAIN IN EXTREMITY [None]
  - ROTATOR CUFF SYNDROME [None]
  - MUSCULOSKELETAL PAIN [None]
